FAERS Safety Report 8494618 (Version 3)
Quarter: 2013Q4

REPORT INFORMATION
  Report Type: Spontaneous
  Country: US (occurrence: US)
  Receive Date: 20120404
  Receipt Date: 20131106
  Transmission Date: 20140711
  Serious: Yes (Other)
  Sender: FDA-Public Use
  Company Number: US-009507513-1204USA00055

PATIENT
  Age: 84 Year
  Sex: Female
  Weight: 68.49 kg

DRUGS (5)
  1. JANUVIA [Suspect]
     Indication: TYPE 2 DIABETES MELLITUS
     Dosage: UNK UNK, ONCE
     Route: 048
  2. JANUVIA [Suspect]
     Dosage: 2 DF, TID
  3. HUMULIN R [Suspect]
     Indication: TYPE 2 DIABETES MELLITUS
     Route: 058
  4. HUMULIN N [Suspect]
     Indication: TYPE 2 DIABETES MELLITUS
     Route: 058
  5. LANTUS [Suspect]
     Indication: TYPE 2 DIABETES MELLITUS
     Dosage: 35 IU, UNK
     Route: 058

REACTIONS (8)
  - Loss of consciousness [Unknown]
  - Blood glucose decreased [Unknown]
  - Weight decreased [Unknown]
  - Cardiac disorder [Unknown]
  - Medical device complication [Unknown]
  - Overdose [Unknown]
  - Fear [Unknown]
  - Diabetes mellitus [Unknown]
